FAERS Safety Report 21269820 (Version 1)
Quarter: 2022Q3

REPORT INFORMATION
  Report Type: Spontaneous
  Country: ES (occurrence: ES)
  Receive Date: 20220830
  Receipt Date: 20220830
  Transmission Date: 20221026
  Serious: Yes (Other)
  Sender: FDA-Public Use
  Company Number: None

PATIENT
  Age: 76 Year
  Sex: Male

DRUGS (3)
  1. GABAPENTIN [Interacting]
     Active Substance: GABAPENTIN
     Indication: Product used for unknown indication
     Dosage: 600 MG, Q8H
     Route: 048
     Dates: start: 20220531, end: 20220601
  2. MIDAZOLAM [Interacting]
     Active Substance: MIDAZOLAM
     Indication: Product used for unknown indication
     Dosage: 8 MG (TOTAL)
     Route: 042
     Dates: start: 20220530, end: 20220530
  3. ALFENTANIL [Interacting]
     Active Substance: ALFENTANIL
     Indication: Product used for unknown indication
     Dosage: 1 DOSAGE FORM, Q72H
     Route: 062
     Dates: start: 20220530, end: 20220601

REACTIONS (3)
  - Disorientation [Recovered/Resolved]
  - Hypotension [Recovered/Resolved]
  - Depressed level of consciousness [Recovered/Resolved]

NARRATIVE: CASE EVENT DATE: 20220601
